FAERS Safety Report 12218525 (Version 1)
Quarter: 2016Q1

REPORT INFORMATION
  Report Type: Report from Study
  Country: BR (occurrence: BR)
  Receive Date: 20160329
  Receipt Date: 20160329
  Transmission Date: 20160526
  Serious: Yes (Disabling, Other)
  Sender: FDA-Public Use
  Company Number: BR-JNJFOC-20160317290

PATIENT
  Age: 56 Year
  Sex: Female
  Weight: 111 kg

DRUGS (1)
  1. STELARA [Suspect]
     Active Substance: USTEKINUMAB
     Indication: PSORIASIS
     Route: 058
     Dates: start: 20150205

REACTIONS (6)
  - Fatigue [Unknown]
  - Ear pain [Unknown]
  - Psoriasis [Unknown]
  - Hypokinesia [Unknown]
  - Drug dose omission [Unknown]
  - Pain [Not Recovered/Not Resolved]

NARRATIVE: CASE EVENT DATE: 20160217
